FAERS Safety Report 7864421-7 (Version None)
Quarter: 2011Q4

REPORT INFORMATION
  Report Type: 
  Country: None (occurrence: None)
  Receive Date: 20111028
  Receipt Date: 20111019
  Transmission Date: 20120403
  Serious: Yes (Hospitalization, Other)
  Sender: FDA-Public Use
  Company Number: PHEH2006US10891

PATIENT
  Sex: Female
  Weight: 88 kg

DRUGS (42)
  1. LORAZEPAM [Concomitant]
  2. EFFEXOR [Concomitant]
     Dosage: 25 MG, UNK
  3. KADIAN ^KNOLL^ [Concomitant]
  4. ACTIVASE [Concomitant]
  5. HEPARIN [Concomitant]
  6. TAXOTERE [Concomitant]
  7. EPIRUBICIN [Concomitant]
  8. ALDACTONE [Concomitant]
  9. LYRICA [Concomitant]
  10. FEMARA [Concomitant]
     Dosage: 2.5 MG, UNK
     Dates: start: 20000101, end: 20060401
  11. PERCOCET [Concomitant]
  12. VALTREX [Concomitant]
  13. MEGACE [Concomitant]
  14. REGLAN [Concomitant]
  15. LUNESTA [Concomitant]
  16. PERIDEX [Concomitant]
  17. METOCLOPRAMIDE [Concomitant]
  18. VALACICLOVIR [Concomitant]
  19. ZOLPIDEM [Concomitant]
  20. CLINDAMYCIN [Concomitant]
  21. NEXIUM [Concomitant]
  22. NEUPOGEN [Concomitant]
  23. AVASTIN [Concomitant]
  24. FLONASE [Concomitant]
  25. RADIATION [Concomitant]
     Dates: start: 20010101
  26. XELODA [Concomitant]
  27. FLUCONAZOLE [Concomitant]
  28. VANCOMYCIN HCL [Concomitant]
  29. OXYCONTIN [Concomitant]
  30. COUMADIN [Concomitant]
  31. CELEBREX [Concomitant]
  32. ZOFRAN [Concomitant]
  33. ZOMETA [Suspect]
     Indication: METASTASES TO BONE
     Dosage: 4 MG, QMO
     Route: 042
     Dates: start: 20020423, end: 20050128
  34. COMBIVENT [Concomitant]
  35. VIOXX [Concomitant]
     Dosage: 50 MG, UNK
  36. GEMZAR [Concomitant]
  37. ALBUTEROL [Concomitant]
  38. FASLODEX [Concomitant]
  39. AREDIA [Suspect]
     Indication: METASTASES TO BONE
     Dosage: 90 MG, QW4
     Route: 042
     Dates: start: 20010401, end: 20011101
  40. ADVAIR DISKUS 100/50 [Concomitant]
  41. CHEMOTHERAPEUTICS NOS [Concomitant]
  42. DECADRON [Concomitant]

REACTIONS (100)
  - PAIN [None]
  - PAIN IN JAW [None]
  - NEURITIS [None]
  - NASAL CONGESTION [None]
  - CLOSTRIDIAL INFECTION [None]
  - ORAL HERPES [None]
  - HEADACHE [None]
  - ATELECTASIS [None]
  - GINGIVAL INFECTION [None]
  - MENTAL STATUS CHANGES [None]
  - CATARACT [None]
  - DIABETES MELLITUS [None]
  - PARAESTHESIA [None]
  - FISTULA DISCHARGE [None]
  - OSTEOMYELITIS [None]
  - PRIMARY SEQUESTRUM [None]
  - SPINAL OSTEOARTHRITIS [None]
  - HYPONATRAEMIA [None]
  - DECUBITUS ULCER [None]
  - SINUS TACHYCARDIA [None]
  - COLITIS [None]
  - URINARY INCONTINENCE [None]
  - CHOLELITHIASIS [None]
  - BREAST CANCER RECURRENT [None]
  - MASTICATION DISORDER [None]
  - DEFORMITY [None]
  - ACUTE SINUSITIS [None]
  - SKIN LESION [None]
  - FAILURE TO THRIVE [None]
  - DYSPHAGIA [None]
  - ABDOMINAL PAIN [None]
  - PSEUDOMEMBRANOUS COLITIS [None]
  - NEOPLASM MALIGNANT [None]
  - PATHOLOGICAL FRACTURE [None]
  - WOUND DEHISCENCE [None]
  - OEDEMA PERIPHERAL [None]
  - ASTHENIA [None]
  - HYPOKALAEMIA [None]
  - HALLUCINATION [None]
  - LETHARGY [None]
  - BLOOD UREA NITROGEN/CREATININE RATIO INCREASED [None]
  - ASCITES [None]
  - PNEUMONIA [None]
  - DECREASED INTEREST [None]
  - METASTASES TO LIVER [None]
  - BONE EROSION [None]
  - TOOTH FRACTURE [None]
  - SERUM FERRITIN INCREASED [None]
  - NUTRITIONAL CONDITION ABNORMAL [None]
  - THROMBOCYTOPENIA [None]
  - CONSTIPATION [None]
  - RIB FRACTURE [None]
  - MALNUTRITION [None]
  - CONFUSIONAL STATE [None]
  - SEPSIS [None]
  - PYREXIA [None]
  - STRESS FRACTURE [None]
  - FEMORAL NECK FRACTURE [None]
  - HYPOXIA [None]
  - OSTEONECROSIS OF JAW [None]
  - ANXIETY [None]
  - JOINT STIFFNESS [None]
  - NEOPLASM PROGRESSION [None]
  - OSTEOARTHRITIS [None]
  - PAIN IN EXTREMITY [None]
  - HYPOALBUMINAEMIA [None]
  - HYPOCHLORAEMIA [None]
  - LUNG INFILTRATION [None]
  - ANAEMIA MACROCYTIC [None]
  - URINARY TRACT INFECTION [None]
  - FALL [None]
  - JOINT INJURY [None]
  - FAECAL INCONTINENCE [None]
  - CHRONIC OBSTRUCTIVE PULMONARY DISEASE [None]
  - IMPAIRED HEALING [None]
  - JAW FRACTURE [None]
  - TOOTH LOSS [None]
  - CARDIAC FAILURE CONGESTIVE [None]
  - OSTEODYSTROPHY [None]
  - ARTHRALGIA [None]
  - MUSCULOSKELETAL PAIN [None]
  - GAIT DISTURBANCE [None]
  - HYPOCALCAEMIA [None]
  - INSOMNIA [None]
  - WEIGHT DECREASED [None]
  - HYPOTENSION [None]
  - DYSPNOEA [None]
  - MUSCLE DISORDER [None]
  - GENERAL PHYSICAL HEALTH DETERIORATION [None]
  - TOOTH DISORDER [None]
  - METASTASES TO MOUTH [None]
  - BONE DISORDER [None]
  - HOT FLUSH [None]
  - OSTEOPOROSIS [None]
  - FATIGUE [None]
  - LUMBAR SPINAL STENOSIS [None]
  - IRITIS [None]
  - PURULENT DISCHARGE [None]
  - LEUKOCYTOSIS [None]
  - DEPRESSED LEVEL OF CONSCIOUSNESS [None]
